FAERS Safety Report 24696007 (Version 2)
Quarter: 2025Q3

REPORT INFORMATION
  Report Type: Report from Study
  Country: US (occurrence: US)
  Receive Date: 20241204
  Receipt Date: 20250802
  Transmission Date: 20251021
  Serious: Yes (Other)
  Sender: ALEXION PHARMACEUTICALS
  Company Number: US-AstraZeneca-CH-00756287A

PATIENT
  Sex: Male

DRUGS (2)
  1. ACALABRUTINIB [Suspect]
     Active Substance: ACALABRUTINIB
     Indication: Chronic lymphocytic leukaemia
     Dosage: 100 MILLIGRAM, BID
     Dates: start: 202402
  2. HYOSCYAMINE [Concomitant]
     Active Substance: HYOSCYAMINE
     Route: 065

REACTIONS (7)
  - Gastrointestinal polyp [Unknown]
  - Abdominal pain upper [Unknown]
  - Depression [Unknown]
  - Heart rate decreased [Unknown]
  - Thyroid disorder [Unknown]
  - Splenic lesion [Unknown]
  - Erectile dysfunction [Unknown]
